FAERS Safety Report 9176397 (Version 2)
Quarter: 2013Q2

REPORT INFORMATION
  Report Type: Spontaneous
  Country: US (occurrence: US)
  Receive Date: 20130321
  Receipt Date: 20130507
  Transmission Date: 20140414
  Serious: No
  Sender: FDA-Public Use
  Company Number: US-009507513-1303USA005376

PATIENT
  Sex: Male

DRUGS (1)
  1. DULERA [Suspect]
     Indication: EMPHYSEMA
     Dosage: 200 MCG/ 5 MG/ TWO PUFFS, TWICE DAILY
     Route: 055
     Dates: start: 201203

REACTIONS (3)
  - Oral pain [Not Recovered/Not Resolved]
  - Wrong technique in drug usage process [Unknown]
  - Off label use [Unknown]
